FAERS Safety Report 20627586 (Version 1)
Quarter: 2022Q1

REPORT INFORMATION
  Report Type: Spontaneous
  Country: CZ (occurrence: CZ)
  Receive Date: 20220323
  Receipt Date: 20220323
  Transmission Date: 20220423
  Serious: Yes (Other)
  Sender: FDA-Public Use
  Company Number: CZ-NOVARTISPH-NVSC2022CZ064966

PATIENT

DRUGS (4)
  1. BEOVU [Suspect]
     Active Substance: BROLUCIZUMAB-DBLL
     Indication: Choroidal neovascularisation
     Dosage: UNK, Q2MO, FIRST INJECTION OF BEOVU
     Route: 065
  2. BEOVU [Suspect]
     Active Substance: BROLUCIZUMAB-DBLL
     Dosage: UNK, Q2MO, 2ND INJECTION OF BEOVU W8
     Route: 065
  3. BEOVU [Suspect]
     Active Substance: BROLUCIZUMAB-DBLL
     Dosage: UNK, Q2MO, 3RD INJECTION OF BEOVU W16
     Route: 065
  4. BEOVU [Suspect]
     Active Substance: BROLUCIZUMAB-DBLL
     Dosage: UNK, Q2MO, 4TH INJECTION OF BEOVU W24
     Route: 065

REACTIONS (2)
  - Retinal oedema [Unknown]
  - Product use in unapproved indication [Unknown]
